FAERS Safety Report 16601709 (Version 4)
Quarter: 2023Q1

REPORT INFORMATION
  Report Type: Report from Study
  Country: IT (occurrence: IT)
  Receive Date: 20190719
  Receipt Date: 20230201
  Transmission Date: 20230417
  Serious: Yes (Hospitalization)
  Sender: FDA-Public Use
  Company Number: IT-002147023-PHHY2018IT018721

PATIENT

DRUGS (7)
  1. RUXOLITINIB [Suspect]
     Active Substance: RUXOLITINIB
     Indication: Myelofibrosis
     Dosage: 30 OT, QD
     Route: 065
     Dates: start: 20180124, end: 20180215
  2. RUXOLITINIB [Suspect]
     Active Substance: RUXOLITINIB
     Dosage: 15 MG, QD
     Route: 048
     Dates: start: 20180216, end: 20190212
  3. RUXOLITINIB [Suspect]
     Active Substance: RUXOLITINIB
     Dosage: 15 OT
     Route: 048
     Dates: start: 20180323, end: 20190212
  4. RUXOLITINIB [Suspect]
     Active Substance: RUXOLITINIB
     Dosage: 20 OT (TOTAL DAILY DOSE)
     Route: 048
     Dates: start: 20190213, end: 20190401
  5. RUXOLITINIB [Suspect]
     Active Substance: RUXOLITINIB
     Dosage: 15 OT (TOTAL DAILY DOSE)
     Route: 048
     Dates: start: 20190402, end: 20190509
  6. RUXOLITINIB [Suspect]
     Active Substance: RUXOLITINIB
     Dosage: 5 OT (TOTAL DAILY DOSE)
     Route: 048
     Dates: start: 20190510, end: 20200526
  7. RUXOLITINIB [Suspect]
     Active Substance: RUXOLITINIB
     Dosage: 10 (TOTAL DAILY DOSE)
     Route: 065
     Dates: start: 20200527

REACTIONS (8)
  - Cerebral atrophy [Recovered/Resolved]
  - Intracranial hypotension [Recovered/Resolved]
  - Headache [Unknown]
  - Headache [Recovered/Resolved]
  - Constipation [Unknown]
  - Subarachnoid haemorrhage [Recovering/Resolving]
  - Visual impairment [Recovered/Resolved]
  - Vomiting [Unknown]

NARRATIVE: CASE EVENT DATE: 20180206
